FAERS Safety Report 10790820 (Version 1)
Quarter: 2015Q1

REPORT INFORMATION
  Report Type: Spontaneous
  Country: FR (occurrence: FR)
  Receive Date: 20150212
  Receipt Date: 20150212
  Transmission Date: 20150721
  Serious: Yes (Hospitalization)
  Sender: FDA-Public Use
  Company Number: FR-PFIZER INC-2015051210

PATIENT
  Age: 76 Year
  Sex: Male

DRUGS (6)
  1. CLINDAMYCIN [Suspect]
     Active Substance: CLINDAMYCIN\CLINDAMYCIN PHOSPHATE
     Indication: UPPER RESPIRATORY TRACT INFECTION
     Dosage: 600 MG, 3X/DAY
     Dates: start: 20141229, end: 20150115
  2. GENTAMYCIN [Concomitant]
     Active Substance: GENTAMICIN
     Dosage: UNK, SINGLE
     Dates: start: 20141230, end: 20141230
  3. FLAGYL [Suspect]
     Active Substance: METRONIDAZOLE\METRONIDAZOLE HYDROCHLORIDE
     Indication: UPPER RESPIRATORY TRACT INFECTION
     Dosage: 500 MG, 3X/DAY
     Dates: start: 20141229, end: 20150115
  4. CLINDAMYCIN [Suspect]
     Active Substance: CLINDAMYCIN\CLINDAMYCIN PHOSPHATE
     Indication: PHARYNGEAL ABSCESS
  5. FLAGYL [Suspect]
     Active Substance: METRONIDAZOLE\METRONIDAZOLE HYDROCHLORIDE
     Indication: PHARYNGEAL ABSCESS
  6. HYDREA [Concomitant]
     Active Substance: HYDROXYUREA

REACTIONS (5)
  - Oedema peripheral [Recovering/Resolving]
  - Rash generalised [Recovering/Resolving]
  - Hyperthermia [Recovering/Resolving]
  - Lymphadenopathy [Recovering/Resolving]
  - Rash maculo-papular [Recovering/Resolving]

NARRATIVE: CASE EVENT DATE: 20150116
